FAERS Safety Report 5363436-0 (Version None)
Quarter: 2007Q2

REPORT INFORMATION
  Report Type: 
  Country: None (occurrence: None)
  Receive Date: 20070620
  Receipt Date: 20070611
  Transmission Date: 20071010
  Serious: Yes (Hospitalization, Other)
  Sender: FDA-Public Use
  Company Number: PHRM2007FR01548

PATIENT
  Age: 63 Year
  Sex: Female
  Weight: 53 kg

DRUGS (6)
  1. FEMARA [Suspect]
     Indication: BREAST CANCER
     Dosage: 2.5 MG PER DAY
     Route: 048
     Dates: start: 20060614
  2. DESLORATADINE [Concomitant]
     Indication: ASTHMA
     Dosage: 1 DF DAILY
     Route: 048
     Dates: start: 20060614
  3. AVLOCARDYL [Concomitant]
     Indication: MIGRAINE
     Dosage: 20 MG, BID
     Route: 048
     Dates: start: 20060216
  4. LESCOL [Concomitant]
     Indication: DYSLIPIDAEMIA
     Dosage: 20 MG DAILY
     Route: 048
     Dates: start: 20050829
  5. PIASCLEDINE [Concomitant]
     Indication: OSTEOARTHRITIS
     Dosage: 1 DF DAILY
     Dates: start: 20051025
  6. ART 50 [Concomitant]
     Indication: OSTEOARTHRITIS
     Dosage: 2 DF DAILY
     Dates: start: 20051025

REACTIONS (2)
  - HAEMOPTYSIS [None]
  - TONGUE CANCER METASTATIC [None]
